FAERS Safety Report 18390901 (Version 1)
Quarter: 2020Q4

REPORT INFORMATION
  Report Type: Spontaneous
  Country: US (occurrence: US)
  Receive Date: 20201016
  Receipt Date: 20201016
  Transmission Date: 20210114
  Serious: No
  Sender: FDA-Public Use
  Company Number: US-DRREDDYS-USA/USA/20/0127842

PATIENT
  Age: 60 Year
  Sex: Male
  Weight: 95.4 kg

DRUGS (1)
  1. HABITROL [Suspect]
     Active Substance: NICOTINE
     Indication: TOBACCO USER
     Route: 062
     Dates: start: 20201001

REACTIONS (4)
  - Application site swelling [Unknown]
  - Application site urticaria [Unknown]
  - Product use issue [Unknown]
  - Product adhesion issue [Unknown]
